FAERS Safety Report 4274398-1 (Version None)
Quarter: 2004Q1

REPORT INFORMATION
  Report Type: 
  Country: None (occurrence: None)
  Receive Date: 20040120
  Receipt Date: 20031209
  Transmission Date: 20041129
  Serious: Yes (Hospitalization, Disabling)
  Sender: FDA-Public Use
  Company Number: WAES 0312DNK00011

PATIENT
  Age: 61 Year
  Sex: Female

DRUGS (2)
  1. LORAZEPAM [Concomitant]
  2. VIOXX [Suspect]
     Route: 048
     Dates: start: 20030701, end: 20030928

REACTIONS (3)
  - EOSINOPHIL COUNT INCREASED [None]
  - HEPATITIS TOXIC [None]
  - PERFORATED ULCER [None]
